FAERS Safety Report 9423175 (Version 2)
Quarter: 2013Q3

REPORT INFORMATION
  Report Type: Spontaneous
  Country: FI (occurrence: None)
  Receive Date: 20130724
  Receipt Date: 20130911
  Transmission Date: 20140515
  Serious: Yes (Hospitalization, Disabling)
  Sender: FDA-Public Use
  Company Number: FI-2013-1945

PATIENT
  Age: 76 Year
  Sex: Female
  Weight: 80 kg

DRUGS (4)
  1. NAVELBINE (VINORELBINE TARTRATE) INFUSION [Suspect]
     Indication: BREAST CANCER METASTATIC
     Dosage: CYCLE 1, DAY 8 AND DAY 15
     Route: 048
     Dates: start: 20120820, end: 20120827
  2. NAVELBINE [Suspect]
     Indication: BREAST CANCER METASTATIC
     Dosage: SINGLE, ON DAY 1 OF FIRST CYCLE
     Route: 042
     Dates: start: 20120813, end: 20120813
  3. INFLUENZA VACCINE (INFLUENZA VACCINE) (INFLUENZA VACCINE) [Suspect]
     Indication: INFLUENZA
     Dates: start: 201211, end: 201211
  4. BONDRONAT (IBANDRONIC ACID) [Concomitant]

REACTIONS (16)
  - Leukopenia [None]
  - Neutropenia [None]
  - C-reactive protein increased [None]
  - Hyponatraemia [None]
  - Nausea [None]
  - Mouth ulceration [None]
  - Diarrhoea [None]
  - Fatigue [None]
  - Alopecia [None]
  - Escherichia test positive [None]
  - Bacteroides test positive [None]
  - Oxygen saturation decreased [None]
  - Alopecia [None]
  - Alopecia [None]
  - Asthenia [None]
  - Wheelchair user [None]
